FAERS Safety Report 11932783 (Version 1)
Quarter: 2016Q1

REPORT INFORMATION
  Report Type: Report from Study
  Country: US (occurrence: US)
  Receive Date: 20160120
  Receipt Date: 20160120
  Transmission Date: 20160526
  Serious: Yes (Hospitalization)
  Sender: FDA-Public Use
  Company Number: US-ACTELION-A-US2016-130079

PATIENT
  Age: 13 Year
  Sex: Male

DRUGS (11)
  1. NASONEX [Concomitant]
     Active Substance: MOMETASONE FUROATE
     Dosage: 1 SPRAY NASALLY, PRN
     Route: 045
     Dates: start: 20150715
  2. ALDACTONE [Concomitant]
     Active Substance: SPIRONOLACTONE
     Dosage: 12.5 MG, QD
     Dates: start: 20140917
  3. PROVIGIL [Concomitant]
     Active Substance: MODAFINIL
     Dosage: 150 MG, QD
     Dates: start: 20140917
  4. ALLEGRA [Concomitant]
     Active Substance: FEXOFENADINE HYDROCHLORIDE
     Dosage: 2 ML, PRN
     Dates: start: 20150715
  5. ZAVESCA [Suspect]
     Active Substance: MIGLUSTAT
     Indication: LIPIDOSIS
     Dosage: 200MG QAM AND 100 MG QPM
     Route: 048
     Dates: start: 20100510
  6. TRILEPTAL [Concomitant]
     Active Substance: OXCARBAZEPINE
     Dosage: 1 TAB, QD
     Dates: start: 20140120
  7. POLYVISOL [Concomitant]
     Dosage: 2 ML, QD
     Dates: start: 20140917
  8. LAMICTAL [Concomitant]
     Active Substance: LAMOTRIGINE
     Dosage: 1 DOSE AS DIRECTED
     Dates: start: 20150715
  9. SINGULAIR [Concomitant]
     Active Substance: MONTELUKAST SODIUM
     Dosage: 1 TAB, QD
     Dates: start: 20140917
  10. PEPCID [Concomitant]
     Active Substance: FAMOTIDINE
     Dosage: 1 TAB, BID
     Dates: start: 20140917
  11. KEPPRA [Concomitant]
     Active Substance: LEVETIRACETAM
     Dosage: 1 TAB QAM AND QPM
     Dates: start: 20140917

REACTIONS (1)
  - Skin infection [Unknown]
